FAERS Safety Report 26213050 (Version 1)
Quarter: 2025Q4

REPORT INFORMATION
  Report Type: Spontaneous
  Country: US (occurrence: US)
  Receive Date: 20251230
  Receipt Date: 20251230
  Transmission Date: 20260117
  Serious: Yes (Hospitalization)
  Sender: MACLEODS
  Company Number: US-MACLEODS PHARMA-MAC2025057434

PATIENT

DRUGS (6)
  1. LINEZOLID [Suspect]
     Active Substance: LINEZOLID
     Indication: Enterococcal infection
     Dosage: ORAL LINEZOLID FOR A PLANNED COURSE OF 8 WEEKS.
     Route: 048
  2. LINEZOLID [Suspect]
     Active Substance: LINEZOLID
     Indication: Enterococcal infection
  3. LINEZOLID [Suspect]
     Active Substance: LINEZOLID
     Indication: Enterococcal infection
  4. ERTAPENEM [Concomitant]
     Active Substance: ERTAPENEM
     Dosage: 1 GRAM IVPB EVERY 12 HOURS
     Route: 042
  5. ERTAPENEM [Concomitant]
     Active Substance: ERTAPENEM
  6. ERTAPENEM [Concomitant]
     Active Substance: ERTAPENEM

REACTIONS (7)
  - Pancreatitis acute [Unknown]
  - Hypoglycaemia [Recovered/Resolved]
  - Vitamin B1 decreased [Recovered/Resolved]
  - Mitochondrial toxicity [Unknown]
  - Toxicity to various agents [Unknown]
  - Metabolic acidosis [Recovered/Resolved]
  - Lactic acidosis [Recovered/Resolved]
